FAERS Safety Report 4752477-X (Version None)
Quarter: 2005Q3

REPORT INFORMATION
  Report Type: 
  Country: None (occurrence: None)
  Receive Date: 20050823
  Receipt Date: 20050805
  Transmission Date: 20060218
  Serious: Yes (Death, Hospitalization, Other)
  Sender: FDA-Public Use
  Company Number: DE_050816637

PATIENT
  Sex: Female

DRUGS (4)
  1. GEMCITABINE HYDROCHLORIDE-IV (GEMCITABINE) [Suspect]
     Indication: BREAST CANCER METASTATIC
  2. MITOXANTRONE [Concomitant]
  3. METOCLOPRAMIDE [Concomitant]
  4. DEXAMETHASONE [Concomitant]

REACTIONS (7)
  - DISEASE PROGRESSION [None]
  - DRUG TOXICITY [None]
  - FEBRILE NEUTROPENIA [None]
  - INFECTION [None]
  - MULTI-ORGAN FAILURE [None]
  - SEPSIS [None]
  - SEPTIC SHOCK [None]
